FAERS Safety Report 25219309 (Version 1)
Quarter: 2025Q2

REPORT INFORMATION
  Report Type: Spontaneous
  Country: US (occurrence: US)
  Receive Date: 20250421
  Receipt Date: 20250421
  Transmission Date: 20250717
  Serious: No
  Sender: BAYER HEALTHCARE LLC
  Company Number: US-BAYER-2025A053762

PATIENT
  Age: 71 Year
  Sex: Female

DRUGS (6)
  1. CLARITIN [Suspect]
     Active Substance: LORATADINE
     Indication: Eye pruritus
     Route: 048
     Dates: start: 20250411, end: 20250418
  2. CLARITIN [Suspect]
     Active Substance: LORATADINE
     Indication: Rhinorrhoea
  3. CLARITIN [Suspect]
     Active Substance: LORATADINE
     Indication: Seasonal allergy
  4. CLARITIN [Suspect]
     Active Substance: LORATADINE
     Indication: Hypersensitivity
  5. CLARITIN [Suspect]
     Active Substance: LORATADINE
     Indication: Nasopharyngitis
  6. ZYRTEC [Concomitant]
     Active Substance: CETIRIZINE HYDROCHLORIDE

REACTIONS (1)
  - Drug ineffective [Unknown]

NARRATIVE: CASE EVENT DATE: 20250411
